FAERS Safety Report 24202649 (Version 3)
Quarter: 2025Q4

REPORT INFORMATION
  Report Type: Spontaneous
  Country: US (occurrence: US)
  Receive Date: 20240813
  Receipt Date: 20251229
  Transmission Date: 20260117
  Serious: Yes (Hospitalization, Other)
  Sender: NOVO NORDISK
  Company Number: US-NOVOPROD-1266982

PATIENT
  Age: 47 Year
  Sex: Female
  Weight: 136.05 kg

DRUGS (4)
  1. WEGOVY [Suspect]
     Active Substance: SEMAGLUTIDE
     Indication: Obesity
     Dosage: 1.7 MG, QW
     Route: 058
     Dates: start: 20221101, end: 20230109
  2. WEGOVY [Suspect]
     Active Substance: SEMAGLUTIDE
     Indication: Obesity
     Dosage: 2.4 MG, QW
     Route: 058
     Dates: start: 20230214, end: 20230523
  3. FENOFIBRATE [Concomitant]
     Active Substance: FENOFIBRATE
     Indication: Obesity
     Dosage: UNK
     Dates: start: 20090101
  4. LEXAPRO [Concomitant]
     Active Substance: ESCITALOPRAM OXALATE
     Indication: Anxiety
     Dosage: UNK
     Dates: start: 20230214

REACTIONS (3)
  - Intestinal obstruction [Recovered/Resolved]
  - Ileus [Unknown]
  - Off label use [Unknown]

NARRATIVE: CASE EVENT DATE: 20221101
